FAERS Safety Report 4312274-6 (Version None)
Quarter: 2004Q1

REPORT INFORMATION
  Report Type: 
  Country: None (occurrence: None)
  Receive Date: 20040303
  Receipt Date: 20040216
  Transmission Date: 20041129
  Serious: No
  Sender: FDA-Public Use
  Company Number: 2004AP00927

PATIENT
  Age: 32 Year
  Sex: Female
  Weight: 73 kg

DRUGS (5)
  1. BUPIVACAINE [Suspect]
     Indication: ANAESTHESIA
     Dosage: 12 MG IS
     Route: 024
  2. MORPHINE [Suspect]
     Dosage: 0.2 MG IS
     Route: 024
  3. FENTANYL [Suspect]
     Dosage: 10 UG IS
     Route: 024
  4. RISPERIDONE [Suspect]
     Dosage: 2 MG HS
  5. LITHIUM [Concomitant]

REACTIONS (3)
  - CONDITION AGGRAVATED [None]
  - DRUG INTERACTION [None]
  - HYPOTENSION [None]
